FAERS Safety Report 6101016-X (Version None)
Quarter: 2009Q1

REPORT INFORMATION
  Report Type: 
  Country: None (occurrence: None)
  Receive Date: 20090304
  Receipt Date: 20090223
  Transmission Date: 20090719
  Serious: Yes (Hospitalization)
  Sender: FDA-Public Use
  Company Number: CA-AMGEN-QUU335367

PATIENT
  Age: 22 Year
  Sex: Female

DRUGS (12)
  1. ARANESP [Suspect]
     Indication: DRUG USE FOR UNKNOWN INDICATION
     Route: 058
  2. AZATHIOPRINE [Suspect]
     Route: 065
  3. CELLCEPT [Suspect]
     Route: 048
  4. EPREX [Suspect]
     Route: 058
  5. PREDNISONE [Suspect]
     Route: 048
  6. ACTONEL [Concomitant]
  7. ATACAND [Concomitant]
  8. BLOOD, WHOLE [Concomitant]
  9. CALCIUM [Concomitant]
  10. NORVASC [Concomitant]
  11. PANTOPRAZOLE [Concomitant]
  12. SODIUM BICARBONATE [Concomitant]

REACTIONS (10)
  - ANAEMIA [None]
  - BONE MARROW DISORDER [None]
  - CONJUNCTIVITIS [None]
  - DRUG INEFFECTIVE [None]
  - DYSPNOEA [None]
  - FATIGUE [None]
  - GASTROINTESTINAL CANDIDIASIS [None]
  - HAEMOGLOBIN DECREASED [None]
  - MOUTH ULCERATION [None]
  - OESOPHAGITIS [None]
